FAERS Safety Report 14369504 (Version 2)
Quarter: 2018Q1

REPORT INFORMATION
  Report Type: Spontaneous
  Country: US (occurrence: US)
  Receive Date: 20180110
  Receipt Date: 20180208
  Transmission Date: 20180509
  Serious: Yes (Death)
  Sender: FDA-Public Use
  Company Number: US-JNJFOC-20171234579

PATIENT
  Sex: Female
  Weight: 38.56 kg

DRUGS (1)
  1. JOHNSONS PRODUCTS (ZINC OXIDE) [Suspect]
     Active Substance: ZINC OXIDE
     Indication: ROUTINE HEALTH MAINTENANCE
     Route: 061

REACTIONS (1)
  - Ovarian cancer [Fatal]
